FAERS Safety Report 5766678-5 (Version None)
Quarter: 2008Q2

REPORT INFORMATION
  Report Type: 
  Country: None (occurrence: None)
  Receive Date: 20080609
  Receipt Date: 20080523
  Transmission Date: 20081010
  Serious: Yes (Hospitalization, Other)
  Sender: FDA-Public Use
  Company Number: 2008PV035501

PATIENT
  Age: 43 Year
  Sex: Female
  Weight: 117.028 kg

DRUGS (13)
  1. SYMLIN [Suspect]
     Indication: DIABETES MELLITUS
     Dosage: 180 MCG; TID; SC, 90 MCG; TID; SC
     Route: 058
     Dates: start: 20071001, end: 20070101
  2. SYMLIN [Suspect]
     Indication: DIABETES MELLITUS
     Dosage: 180 MCG; TID; SC, 90 MCG; TID; SC
     Route: 058
     Dates: start: 20070101
  3. NOVOLOG [Concomitant]
  4. LANTUS [Concomitant]
  5. CELEBREX [Concomitant]
  6. HUMIRA [Concomitant]
  7. METFORMIN [Concomitant]
  8. AVANDIA [Concomitant]
  9. ARAZA TABLETS [Concomitant]
  10. DIURETICS [Concomitant]
  11. ANTIHYPERTENSIVES [Concomitant]
  12. CHOLESTEROL- AND TRIGLYCERIDE REDUCES [Concomitant]
  13. CYMBALTA [Concomitant]

REACTIONS (7)
  - ANAEMIA [None]
  - BLOOD GLUCOSE DECREASED [None]
  - BLOOD GLUCOSE INCREASED [None]
  - HYPOAESTHESIA ORAL [None]
  - RENAL IMPAIRMENT [None]
  - VITAMIN B12 DEFICIENCY [None]
  - WEIGHT DECREASED [None]
